FAERS Safety Report 4489794-7 (Version None)
Quarter: 2004Q4

REPORT INFORMATION
  Report Type: 
  Country: None (occurrence: None)
  Receive Date: 20041026
  Receipt Date: 20041011
  Transmission Date: 20050328
  Serious: Yes (Death)
  Sender: FDA-Public Use
  Company Number: S04-FRA-06920-01

PATIENT
  Age: 75 Year
  Sex: Male

DRUGS (2)
  1. CITALOPRAM HYDROBROMIDE [Suspect]
     Indication: DEPRESSION
     Dosage: 20 MG ONCE IV
     Route: 042
     Dates: start: 20041008, end: 20041008
  2. AUGMENTIN '125' [Concomitant]

REACTIONS (1)
  - PULMONARY EMBOLISM [None]
